FAERS Safety Report 8607761-6 (Version None)
Quarter: 2012Q3

REPORT INFORMATION
  Report Type: 
  Country: None (occurrence: None)
  Receive Date: 20120821
  Receipt Date: 20120815
  Transmission Date: 20120928
  Serious: Yes (Hospitalization)
  Sender: FDA-Public Use
  Company Number: PHHY2012TR051898

PATIENT
  Sex: Female
  Weight: 29 kg

DRUGS (1)
  1. EXJADE [Suspect]
     Indication: THALASSAEMIA BETA
     Dosage: 1000 MG, UNK
     Dates: end: 20120615

REACTIONS (3)
  - WHITE BLOOD CELL COUNT INCREASED [None]
  - INFECTION [None]
  - C-REACTIVE PROTEIN INCREASED [None]
